FAERS Safety Report 17564513 (Version 1)
Quarter: 2020Q1

REPORT INFORMATION
  Report Type: Spontaneous
  Country: US (occurrence: US)
  Receive Date: 20200320
  Receipt Date: 20200320
  Transmission Date: 20200409
  Serious: Yes (Other)
  Sender: FDA-Public Use
  Company Number: US-GLAXOSMITHKLINE-US2020046917

PATIENT
  Age: 69 Year
  Sex: Male

DRUGS (1)
  1. ADVAIR DISKUS [Suspect]
     Active Substance: FLUTICASONE PROPIONATE\SALMETEROL XINAFOATE
     Indication: PRODUCT USED FOR UNKNOWN INDICATION
     Dosage: 250/50
     Route: 055

REACTIONS (8)
  - Lower respiratory tract infection [Recovering/Resolving]
  - Vomiting [Unknown]
  - Underdose [Unknown]
  - Dyspnoea [Recovered/Resolved]
  - Productive cough [Unknown]
  - Chest discomfort [Unknown]
  - Cough [Unknown]
  - Prescribed underdose [Unknown]

NARRATIVE: CASE EVENT DATE: 20200312
